FAERS Safety Report 4354934-7 (Version None)
Quarter: 2004Q2

REPORT INFORMATION
  Report Type: 
  Country: None (occurrence: None)
  Receive Date: 20040504
  Receipt Date: 20040428
  Transmission Date: 20050107
  Serious: Yes (Hospitalization)
  Sender: FDA-Public Use
  Company Number: THQ2004A00400

PATIENT
  Age: 87 Year
  Sex: Female

DRUGS (12)
  1. LANSOPRAZOLE [Suspect]
     Dosage: 15 MG (1 D); PER ORAL
     Route: 048
  2. INDAPAMIDE [Suspect]
     Dosage: 2.5 MG (UNKNOWN); UNKNOWN
     Route: 065
     Dates: end: 20040204
  3. LORAZEPAM [Concomitant]
  4. ASPIRIN [Concomitant]
  5. PRITOR (TELMISARTAN) [Concomitant]
  6. SOTALEX (SOLALOL HYDROCHLORIDE) (TABLETS) [Concomitant]
  7. NEURONTIN [Concomitant]
  8. VALACYCLOVIR HCL [Concomitant]
  9. STABLON (TIANEPTINE) [Concomitant]
  10. JOSACINE (JOSAMYCIN) [Concomitant]
  11. SURBRONC (AMBROXOL HYDROCHLORIDE) [Concomitant]
  12. LYSINE [Concomitant]

REACTIONS (12)
  - ABNORMAL BEHAVIOUR [None]
  - ANOREXIA [None]
  - ASTHENIA [None]
  - BRONCHIAL INFECTION [None]
  - CEREBROVASCULAR ACCIDENT [None]
  - FALL [None]
  - GENERAL PHYSICAL HEALTH DETERIORATION [None]
  - HERPES ZOSTER [None]
  - HYPOKALAEMIA [None]
  - HYPONATRAEMIA [None]
  - NAUSEA [None]
  - URINARY INCONTINENCE [None]
